FAERS Safety Report 13247986 (Version 1)
Quarter: 2017Q1

REPORT INFORMATION
  Report Type: Spontaneous
  Country: GB (occurrence: GB)
  Receive Date: 20170217
  Receipt Date: 20170217
  Transmission Date: 20170428
  Serious: Yes (Other)
  Sender: FDA-Public Use
  Company Number: GB-MYLANLABS-2017M1010010

PATIENT

DRUGS (5)
  1. WARFARIN [Suspect]
     Active Substance: WARFARIN
     Dosage: 3MG,3MG, 4MG PER DAY
     Dates: start: 19980601
  2. SIMVASTATIN. [Concomitant]
     Active Substance: SIMVASTATIN
     Dosage: 40 MG, QD
  3. NIGHT NURSE [Suspect]
     Active Substance: ACETAMINOPHEN\DEXTROMETHORPHAN HYDROBROMIDE\PROMETHAZINE HYDROCHLORIDE
     Indication: RHINORRHOEA
     Dosage: 20 ML, UNK
     Route: 048
     Dates: start: 20170113
  4. DIGOXIN. [Concomitant]
     Active Substance: DIGOXIN
     Dosage: 250 ?G, QD
  5. TAMSULOSIN [Concomitant]
     Active Substance: TAMSULOSIN
     Dosage: 400 ?G, QD

REACTIONS (2)
  - Labelled drug-drug interaction medication error [Unknown]
  - Epistaxis [Recovering/Resolving]

NARRATIVE: CASE EVENT DATE: 20170115
